FAERS Safety Report 6712068-8 (Version None)
Quarter: 2010Q2

REPORT INFORMATION
  Report Type: 
  Country: None (occurrence: None)
  Receive Date: 20100505
  Receipt Date: 20100423
  Transmission Date: 20101027
  Serious: Yes (Hospitalization)
  Sender: FDA-Public Use
  Company Number: PHHY2010FR26618

PATIENT
  Sex: Female

DRUGS (1)
  1. RASILEZ [Suspect]
     Dosage: 150 MG FOR 3 OR 4 DAYS

REACTIONS (3)
  - NAUSEA [None]
  - RENAL FAILURE ACUTE [None]
  - VOMITING [None]
